FAERS Safety Report 14317680 (Version 1)
Quarter: 2017Q4

REPORT INFORMATION
  Report Type: Spontaneous
  Country: US (occurrence: US)
  Receive Date: 20171222
  Receipt Date: 20171222
  Transmission Date: 20180321
  Serious: No
  Sender: FDA-Public Use
  Company Number: US-009507513-1711USA011946

PATIENT
  Age: 17 Year
  Sex: Female
  Weight: 47.17 kg

DRUGS (2)
  1. NEXPLANON [Suspect]
     Active Substance: ETONOGESTREL
     Indication: CONTRACEPTION
     Dosage: 3 YEAR IMPLANT, LEFT ARM
     Route: 059
     Dates: start: 20160505
  2. ACETAZOLAMIDE. [Concomitant]
     Active Substance: ACETAZOLAMIDE

REACTIONS (1)
  - Visual impairment [Unknown]

NARRATIVE: CASE EVENT DATE: 201707
